FAERS Safety Report 17997298 (Version 1)
Quarter: 2020Q3

REPORT INFORMATION
  Report Type: Spontaneous
  Country: PL (occurrence: PL)
  Receive Date: 20200708
  Receipt Date: 20200708
  Transmission Date: 20201103
  Serious: Yes (Hospitalization)
  Sender: FDA-Public Use
  Company Number: NVSC2020PL191749

PATIENT
  Age: 41 Year
  Sex: Female

DRUGS (3)
  1. TEGRETOL [Suspect]
     Active Substance: CARBAMAZEPINE
     Indication: POISONING
     Dosage: DOSE: 1 X 100 TABLETS
     Route: 048
     Dates: start: 20200129, end: 20200129
  2. RELANIUM (DIAZEPAM) [Suspect]
     Active Substance: DIAZEPAM
     Indication: POISONING
     Dosage: DOSE: 1 X 20 TABLETS
     Route: 048
     Dates: start: 20200129, end: 20200129
  3. TEGRETOL [Suspect]
     Active Substance: CARBAMAZEPINE
     Indication: POISONING
     Dosage: DOSE: 1 X 100 TABLETS
     Route: 048
     Dates: start: 20200129, end: 20200129

REACTIONS (2)
  - Coma [Recovered/Resolved]
  - Drug abuse [Recovered/Resolved]

NARRATIVE: CASE EVENT DATE: 20200129
